FAERS Safety Report 7466127-5 (Version None)
Quarter: 2011Q2

REPORT INFORMATION
  Report Type: 
  Country: None (occurrence: None)
  Receive Date: 20110509
  Receipt Date: 20110408
  Transmission Date: 20111010
  Serious: Yes (Hospitalization, Other)
  Sender: FDA-Public Use
  Company Number: US-ALEXION-A201000676

PATIENT
  Sex: Male

DRUGS (5)
  1. ACYCLOVIR [Concomitant]
     Dosage: 400 MG, QD
     Route: 048
  2. PREDNISONE [Concomitant]
     Dosage: 2.5 MG, QD
     Route: 048
  3. SOLIRIS [Suspect]
     Indication: PAROXYSMAL NOCTURNAL HAEMOGLOBINURIA
     Dosage: 900 MG, Q2W
     Route: 042
  4. WARFARIN [Concomitant]
     Dosage: 5 MG, QD
     Route: 048
  5. OXYCODONE [Concomitant]
     Dosage: UNK
     Route: 048

REACTIONS (6)
  - CONDITION AGGRAVATED [None]
  - WEIGHT DECREASED [None]
  - DECREASED APPETITE [None]
  - ASCITES [None]
  - CHOLECYSTITIS [None]
  - PORTAL HYPERTENSION [None]
